FAERS Safety Report 17408863 (Version 1)
Quarter: 2020Q1

REPORT INFORMATION
  Report Type: Spontaneous
  Country: AT (occurrence: AT)
  Receive Date: 20200212
  Receipt Date: 20200212
  Transmission Date: 20200409
  Serious: Yes (Other)
  Sender: FDA-Public Use
  Company Number: AT-PFIZER INC-2020053904

PATIENT
  Sex: Male

DRUGS (13)
  1. NEURONTIN [Suspect]
     Active Substance: GABAPENTIN
     Dosage: 600 MG, 1X/DAY
     Route: 048
     Dates: start: 201912, end: 20191223
  2. NEXIUM [Concomitant]
     Active Substance: ESOMEPRAZOLE MAGNESIUM
     Dosage: 1 DF, 1X/DAY
     Route: 048
  3. MARCOUMAR [Concomitant]
     Active Substance: PHENPROCOUMON
     Dosage: 0.5 DF, 1X/DAY
  4. SIMVASTATIN. [Concomitant]
     Active Substance: SIMVASTATIN
     Dosage: 1 DF, 1X/DAY
     Route: 048
  5. SIRDALUD [Concomitant]
     Active Substance: TIZANIDINE
     Dosage: 1 DF, 1X/DAY
     Route: 048
  6. SIRDALUD [Concomitant]
     Active Substance: TIZANIDINE
     Dosage: 2 DF, 1X/DAY
     Route: 048
  7. NEURONTIN [Suspect]
     Active Substance: GABAPENTIN
     Dosage: UNK
     Dates: start: 201912, end: 20191223
  8. FINASTERID [Concomitant]
     Active Substance: FINASTERIDE
     Dosage: 1 DF, 1X/DAY
     Route: 048
  9. LOCERYL [Concomitant]
     Active Substance: AMOROLFINE HYDROCHLORIDE
     Indication: ONYCHOMYCOSIS
     Dosage: 1 DF, WEEKLY
  10. PLAVIX [Concomitant]
     Active Substance: CLOPIDOGREL BISULFATE
     Dosage: 1 DF, 1X/DAY
     Route: 048
  11. ALNA RETARD [Concomitant]
     Active Substance: TAMSULOSIN HYDROCHLORIDE
     Dosage: 1 DF, 1X/DAY
     Route: 048
  12. VERTIROSAN [DIMENHYDRINATE] [Concomitant]
     Active Substance: DIMENHYDRINATE
     Dosage: 2 DF, 1X/DAY
  13. LEGALON [Concomitant]
     Active Substance: DIETARY SUPPLEMENT\HERBALS\MILK THISTLE
     Dosage: 1 DF, 1X/DAY

REACTIONS (6)
  - Fungal skin infection [Not Recovered/Not Resolved]
  - Swelling [Not Recovered/Not Resolved]
  - Exfoliative rash [Not Recovered/Not Resolved]
  - Onychomycosis [Not Recovered/Not Resolved]
  - Disease recurrence [Not Recovered/Not Resolved]
  - Angina pectoris [Not Recovered/Not Resolved]

NARRATIVE: CASE EVENT DATE: 201912
